FAERS Safety Report 26209835 (Version 1)
Quarter: 2025Q4

REPORT INFORMATION
  Report Type: Report from Study
  Country: US (occurrence: US)
  Receive Date: 20251229
  Receipt Date: 20251229
  Transmission Date: 20260119
  Serious: Yes (Hospitalization)
  Sender: TAKEDA
  Company Number: US-TAKEDA-2025TUS118279

PATIENT
  Age: 83 Year
  Sex: Male

DRUGS (3)
  1. FRUQUINTINIB [Suspect]
     Active Substance: FRUQUINTINIB
     Indication: Appendix cancer
     Dosage: 5 MILLIGRAM
  2. ADVIL [Concomitant]
     Active Substance: IBUPROFEN
     Dosage: UNK
  3. POTASSIUM CHLORIDE [Concomitant]
     Active Substance: POTASSIUM CHLORIDE
     Dosage: UNK

REACTIONS (2)
  - Fall [Recovered/Resolved]
  - Blood pressure increased [Recovered/Resolved]

NARRATIVE: CASE EVENT DATE: 20251216
